FAERS Safety Report 4982066-3 (Version None)
Quarter: 2006Q2

REPORT INFORMATION
  Report Type: 
  Country: None (occurrence: None)
  Receive Date: 20060425
  Receipt Date: 20060327
  Transmission Date: 20061013
  Serious: Yes (Other)
  Sender: FDA-Public Use
  Company Number: FR-BRISTOL-MYERS SQUIBB COMPANY-13328968

PATIENT
  Age: 45 Year
  Sex: Female
  Weight: 58 kg

DRUGS (2)
  1. ABILIFY [Suspect]
     Indication: SCHIZOPHRENIA
     Route: 048
     Dates: start: 20060315, end: 20060321
  2. SOLIAN [Suspect]
     Indication: SCHIZOPHRENIA
     Dates: start: 20060315

REACTIONS (2)
  - FALL [None]
  - LOSS OF CONSCIOUSNESS [None]
